FAERS Safety Report 6407033-4 (Version None)
Quarter: 2009Q4

REPORT INFORMATION
  Report Type: 
  Country: None (occurrence: None)
  Receive Date: 20091020
  Receipt Date: 20091008
  Transmission Date: 20100525
  Serious: Yes (Death)
  Sender: FDA-Public Use
  Company Number: US-PFIZER INC-2009154398

PATIENT
  Age: 32 Year
  Sex: Female

DRUGS (10)
  1. CHANTIX [Suspect]
     Dosage: UNK
  2. OTHER NERVOUS SYSTEM DRUGS [Suspect]
     Dosage: UNK
  3. ALL OTHER THERAPEUTIC PRODUCTS [Suspect]
  4. ALL OTHER THERAPEUTIC PRODUCTS [Concomitant]
  5. VITAMINS [Concomitant]
  6. RISPERDAL [Concomitant]
     Dosage: 1 MG, 2X/DAY
  7. ZOLPIDEM [Concomitant]
     Dosage: 10 MG, 1X/DAY
  8. DOXEPIN [Concomitant]
     Dosage: 150 MG, 1X/DAY
  9. CLONAZEPAM [Concomitant]
     Dosage: 1 MG, 2X/DAY
  10. DEPAKOTE [Concomitant]
     Dosage: 500 MG, THREE AT BED TIME

REACTIONS (5)
  - ABDOMINAL PAIN UPPER [None]
  - COMPLETED SUICIDE [None]
  - HEADACHE [None]
  - NAUSEA [None]
  - OVERDOSE [None]
